FAERS Safety Report 18999070 (Version 2)
Quarter: 2021Q1

REPORT INFORMATION
  Report Type: Report from Study
  Country: None (occurrence: AU)
  Receive Date: 20210311
  Receipt Date: 20210315
  Transmission Date: 20210420
  Serious: Yes (Other)
  Sender: FDA-Public Use
  Company Number: AU-ABBVIE-21K-008-3809446-00

PATIENT
  Sex: Male

DRUGS (2)
  1. DUODOPA [Suspect]
     Active Substance: CARBIDOPA\LEVODOPA
     Indication: PARKINSON^S DISEASE
     Route: 050
     Dates: start: 20171214
  2. DUODOPA [Suspect]
     Active Substance: CARBIDOPA\LEVODOPA

REACTIONS (14)
  - Constipation [Unknown]
  - Communication disorder [Unknown]
  - Medical device change [Unknown]
  - Hypophagia [Unknown]
  - Walking aid user [Unknown]
  - Illiteracy [Unknown]
  - Cognitive disorder [Not Recovered/Not Resolved]
  - Incorrect route of product administration [Unknown]
  - Blindness [Unknown]
  - Inflammation [Unknown]
  - Micturition urgency [Unknown]
  - Medical device site burn [Unknown]
  - Bradykinesia [Unknown]
  - Disorientation [Unknown]

NARRATIVE: CASE EVENT DATE: 2020
